FAERS Safety Report 6875669-2 (Version None)
Quarter: 2010Q3

REPORT INFORMATION
  Report Type: 
  Country: None (occurrence: None)
  Receive Date: 20100727
  Receipt Date: 20070919
  Transmission Date: 20110219
  Serious: Yes (Hospitalization, Other)
  Sender: FDA-Public Use
  Company Number: US-PFIZER INC-2006121947

PATIENT
  Sex: Female
  Weight: 85.7 kg

DRUGS (5)
  1. CELEBREX [Suspect]
     Indication: ARTHRITIS
     Route: 048
     Dates: start: 20000811
  2. VIOXX [Suspect]
     Indication: PAIN
     Route: 048
     Dates: start: 20010131, end: 20010201
  3. FUROSEMIDE [Concomitant]
     Dates: start: 19980701
  4. CARISOPRODOL [Concomitant]
     Dates: start: 19980518, end: 20010801
  5. ULTRAM [Concomitant]
     Dates: start: 19990805, end: 20010901

REACTIONS (1)
  - CEREBROVASCULAR ACCIDENT [None]
